FAERS Safety Report 11518298 (Version 3)
Quarter: 2016Q2

REPORT INFORMATION
  Report Type: Report from Study
  Country: MX (occurrence: MX)
  Receive Date: 20150917
  Receipt Date: 20160613
  Transmission Date: 20160815
  Serious: Yes (Death)
  Sender: FDA-Public Use
  Company Number: PHHY2015MX111527

PATIENT
  Sex: Male

DRUGS (1)
  1. EXFORGE [Suspect]
     Active Substance: AMLODIPINE BESYLATE\VALSARTAN
     Indication: PRODUCT USED FOR UNKNOWN INDICATION
     Dosage: 1 DF, (AMLODIPINE 5 MG, VALSARTAN 160 MG)
     Route: 065

REACTIONS (3)
  - Hypertension [Fatal]
  - Renal failure [Fatal]
  - Myocardial infarction [Fatal]
